FAERS Safety Report 4518883-3 (Version None)
Quarter: 2004Q4

REPORT INFORMATION
  Report Type: 
  Country: None (occurrence: None)
  Receive Date: 20041206
  Receipt Date: 20041125
  Transmission Date: 20050328
  Serious: Yes (Congenital Anomaly)
  Sender: FDA-Public Use
  Company Number: 200414434FR

PATIENT
  Age: 1 Hour
  Sex: Male
  Weight: 2.88 kg

DRUGS (6)
  1. TELFAST [Suspect]
     Indication: ASTHMA
     Route: 064
     Dates: end: 20041022
  2. BRONCHODUAL [Suspect]
     Indication: ASTHMA
     Route: 064
     Dates: end: 20041022
  3. FLIXONASE [Suspect]
     Indication: ASTHMA
     Route: 064
     Dates: end: 20041022
  4. SERETIDE [Suspect]
     Indication: ASTHMA
     Route: 064
     Dates: end: 20041022
  5. AERIUS [Suspect]
     Route: 064
  6. ZADITEN [Suspect]
     Route: 064
     Dates: end: 20041022

REACTIONS (7)
  - COARCTATION OF THE AORTA [None]
  - CONGENITAL VENTRICULAR SEPTAL DEFECT [None]
  - DRUG EXPOSURE DURING PREGNANCY [None]
  - GASTROINTESTINAL MALFORMATION [None]
  - HEART DISEASE CONGENITAL [None]
  - MULTIPLE CONGENITAL ABNORMALITIES [None]
  - OESOPHAGEAL ATRESIA [None]
